FAERS Safety Report 16939986 (Version 4)
Quarter: 2020Q1

REPORT INFORMATION
  Report Type: Spontaneous
  Country: GB (occurrence: GB)
  Receive Date: 20191021
  Receipt Date: 20200212
  Transmission Date: 20200409
  Serious: Yes (Other)
  Sender: FDA-Public Use
  Company Number: GB-MYLANLABS-2019M1098106

PATIENT
  Age: 78 Year
  Sex: Female

DRUGS (3)
  1. DOXYCYCLINE. [Interacting]
     Active Substance: DOXYCYCLINE
     Dosage: 100 MILLIGRAM (SHE TOOK 8 CAPSULES)
     Route: 065
     Dates: start: 20190709, end: 20190714
  2. DOXYCYCLINE. [Suspect]
     Active Substance: DOXYCYCLINE
     Indication: SINUSITIS
     Dosage: 100 MILLIGRAM
     Route: 065
  3. PHENYTOIN. [Concomitant]
     Active Substance: PHENYTOIN
     Indication: PRODUCT USED FOR UNKNOWN INDICATION
     Dosage: UNK
     Route: 065

REACTIONS (23)
  - Balance disorder [Recovered/Resolved]
  - Back pain [Not Recovered/Not Resolved]
  - Head discomfort [Not Recovered/Not Resolved]
  - Drug interaction [Unknown]
  - Skin exfoliation [Unknown]
  - Musculoskeletal chest pain [Not Recovered/Not Resolved]
  - Rash [Recovered/Resolved]
  - Headache [Unknown]
  - Skin lesion [Recovered/Resolved]
  - Tinnitus [Not Recovered/Not Resolved]
  - Urticaria [Not Recovered/Not Resolved]
  - Arthralgia [Not Recovered/Not Resolved]
  - Contusion [Unknown]
  - Ocular icterus [Unknown]
  - Loss of consciousness [Unknown]
  - Paraesthesia [Not Recovered/Not Resolved]
  - Breast discomfort [Not Recovered/Not Resolved]
  - Myalgia [Not Recovered/Not Resolved]
  - Decreased appetite [Not Recovered/Not Resolved]
  - Dizziness [Recovered/Resolved]
  - Abdominal pain upper [Not Recovered/Not Resolved]
  - Hypoaesthesia [Not Recovered/Not Resolved]
  - Bone pain [Not Recovered/Not Resolved]

NARRATIVE: CASE EVENT DATE: 20190711
